FAERS Safety Report 6640157-5 (Version None)
Quarter: 2010Q1

REPORT INFORMATION
  Report Type: 
  Country: None (occurrence: None)
  Receive Date: 20100318
  Receipt Date: 20100304
  Transmission Date: 20100710
  Serious: Yes (Life-Threatening)
  Sender: FDA-Public Use
  Company Number: JP-ROCHE-689405

PATIENT
  Sex: Female

DRUGS (5)
  1. AVASTIN [Suspect]
     Indication: COLON CANCER
     Dosage: NOTE: THREE COURSES
     Route: 041
     Dates: start: 20100119
  2. ELPLAT [Suspect]
     Indication: COLON CANCER
     Dosage: NOTE: THREE COURSES
     Route: 041
     Dates: start: 20100119
  3. LEVOFOLINATE [Suspect]
     Indication: COLON CANCER
     Dosage: NOTE: THREE COURSES DRUG REPORTED AS: UNKNOWNDRUG(LEVOFOLINATE CALCIUM)
     Route: 041
     Dates: start: 20100119
  4. FLUOROURACIL [Suspect]
     Indication: COLON CANCER
     Dosage: NOTE: THREE COURSES
     Route: 040
     Dates: start: 20100119
  5. FLUOROURACIL [Suspect]
     Dosage: NOTE: THREE COURSES
     Route: 041
     Dates: start: 20100119

REACTIONS (1)
  - PULMONARY OEDEMA [None]
